FAERS Safety Report 14020693 (Version 1)
Quarter: 2017Q3

REPORT INFORMATION
  Report Type: Spontaneous
  Country: FR (occurrence: FR)
  Receive Date: 20170928
  Receipt Date: 20170928
  Transmission Date: 20171128
  Serious: Yes (Hospitalization)
  Sender: FDA-Public Use
  Company Number: FR-ABBVIE-17K-056-2030226-00

PATIENT
  Age: 68 Year
  Sex: Male
  Weight: 61 kg

DRUGS (4)
  1. AMPHOTERICINE [Concomitant]
     Active Substance: AMPHOTERICIN B
     Indication: ORAL FUNGAL INFECTION
     Dates: start: 201708
  2. DUODOPA [Suspect]
     Active Substance: CARBIDOPA\LEVODOPA
     Indication: PARKINSON^S DISEASE
  3. DUODOPA [Suspect]
     Active Substance: CARBIDOPA\LEVODOPA
     Indication: ON AND OFF PHENOMENON
     Route: 050
     Dates: start: 20170325, end: 20170902
  4. SODIUM BICARBONATE. [Concomitant]
     Active Substance: SODIUM BICARBONATE
     Indication: ORAL FUNGAL INFECTION
     Route: 048
     Dates: start: 201708

REACTIONS (5)
  - Dysgeusia [Recovered/Resolved]
  - Device leakage [Recovered/Resolved]
  - Oral fungal infection [Unknown]
  - Dyskinesia [Unknown]
  - Weight decreased [Unknown]

NARRATIVE: CASE EVENT DATE: 2017
